FAERS Safety Report 23321843 (Version 1)
Quarter: 2023Q4

REPORT INFORMATION
  Report Type: Spontaneous
  Country: US (occurrence: None)
  Receive Date: 20231220
  Receipt Date: 20231220
  Transmission Date: 20240109
  Serious: No
  Sender: FDA-Public Use
  Company Number: None

PATIENT
  Age: 12 Month
  Sex: Female

DRUGS (5)
  1. VIGABATRIN [Suspect]
     Active Substance: VIGABATRIN
     Indication: Tuberous sclerosis complex
  2. PHENOBARBITAL [Concomitant]
     Active Substance: PHENOBARBITAL
  3. KEPPRA [Concomitant]
     Active Substance: LEVETIRACETAM
  4. PREDNISOLONE [Concomitant]
     Active Substance: PREDNISOLONE
  5. FAMOTIDINE [Concomitant]
     Active Substance: FAMOTIDINE

REACTIONS (2)
  - Tuberous sclerosis complex [None]
  - Off label use [None]

NARRATIVE: CASE EVENT DATE: 20231219
